FAERS Safety Report 15075517 (Version 1)
Quarter: 2018Q2

REPORT INFORMATION
  Report Type: Report from Study
  Country: US (occurrence: US)
  Receive Date: 20180627
  Receipt Date: 20180627
  Transmission Date: 20180711
  Serious: No
  Sender: FDA-Public Use
  Company Number: US-SAOL THERAPEUTICS-2018SAO00027

PATIENT
  Age: 59 Year
  Sex: Female

DRUGS (4)
  1. COMPOUNDED BACLOFEN [Suspect]
     Active Substance: BACLOFEN
     Dosage: 145.72 ?G, \DAY
     Route: 037
     Dates: end: 20171218
  2. SUFENTA [Suspect]
     Active Substance: SUFENTANIL CITRATE
     Dosage: 165.09 ?G, \DAY
     Route: 037
  3. CLONIDINE. [Suspect]
     Active Substance: CLONIDINE
     Dosage: 146 ?G, \DAY
     Route: 037
     Dates: start: 20171218
  4. COMPOUNDED BUPIVACAINE [Suspect]
     Active Substance: BUPIVACAINE
     Dosage: 12.381 MG, \DAY
     Route: 037

REACTIONS (2)
  - Pain [Recovered/Resolved]
  - Medication error [Recovered/Resolved]

NARRATIVE: CASE EVENT DATE: 20171218
